FAERS Safety Report 22145535 (Version 6)
Quarter: 2023Q2

REPORT INFORMATION
  Report Type: Report from Study
  Country: CO (occurrence: CO)
  Receive Date: 20230328
  Receipt Date: 20230609
  Transmission Date: 20230721
  Serious: Yes (Hospitalization, Other)
  Sender: FDA-Public Use
  Company Number: CO-ABBVIE-4705819

PATIENT
  Sex: Female

DRUGS (3)
  1. VENCLEXTA [Suspect]
     Active Substance: VENETOCLAX
     Indication: Acute myeloid leukaemia
     Dosage: LAST ADMIN DATE APR 2023
     Route: 048
     Dates: start: 20230404
  2. VENCLEXTA [Suspect]
     Active Substance: VENETOCLAX
     Indication: Acute myeloid leukaemia
     Dosage: FORM STRENGTH: 100MG,
     Route: 048
     Dates: start: 20230420, end: 20230529
  3. VENCLEXTA [Suspect]
     Active Substance: VENETOCLAX
     Indication: Acute myeloid leukaemia
     Dosage: FORM STRENGTH: 100MG,
     Route: 048
     Dates: start: 20230223, end: 20230324

REACTIONS (9)
  - Infection [Recovering/Resolving]
  - Platelet count decreased [Recovering/Resolving]
  - Laboratory test abnormal [Not Recovered/Not Resolved]
  - Hypotension [Recovering/Resolving]
  - Haemoglobin decreased [Unknown]
  - Red blood cell count abnormal [Recovering/Resolving]
  - Platelet count decreased [Unknown]
  - Immune system disorder [Not Recovered/Not Resolved]
  - Haemoglobin abnormal [Recovered/Resolved]

NARRATIVE: CASE EVENT DATE: 20230101
